FAERS Safety Report 17737396 (Version 2)
Quarter: 2020Q2

REPORT INFORMATION
  Report Type: Spontaneous
  Country: US (occurrence: US)
  Receive Date: 20200504
  Receipt Date: 20200507
  Transmission Date: 20200714
  Serious: No
  Sender: FDA-Public Use
  Company Number: US-ASTRAZENECA-2020SE57278

PATIENT
  Age: 27131 Day
  Sex: Female

DRUGS (2)
  1. GENERIC SYMBICORT [Suspect]
     Active Substance: BUDESONIDE\FORMOTEROL FUMARATE DIHYDRATE
     Indication: DYSPNOEA
     Dosage: GENERIC 160/4.5 120 INHALATIONS, TWO PUFFS TWO TIMES A DAY
     Route: 055
  2. GENERIC SYMBICORT [Suspect]
     Active Substance: BUDESONIDE\FORMOTEROL FUMARATE DIHYDRATE
     Indication: ASTHMA
     Dosage: GENERIC 160/4.5 120 INHALATIONS, TWO PUFFS TWO TIMES A DAY
     Route: 055

REACTIONS (5)
  - Asthma [Not Recovered/Not Resolved]
  - Frustration tolerance decreased [Unknown]
  - Device delivery system issue [Unknown]
  - Device issue [Unknown]
  - Intentional device misuse [Unknown]

NARRATIVE: CASE EVENT DATE: 20200427
